FAERS Safety Report 9769225 (Version 1)
Quarter: 2013Q3

REPORT INFORMATION
  Report Type: Spontaneous
  Country: US (occurrence: None)
  Receive Date: 20130904
  Receipt Date: 20130904
  Transmission Date: 20140515
  Serious: Yes (Death, Other)
  Sender: FDA-Public Use
  Company Number: 09-AUR-09549

PATIENT
  Age: 38 Year
  Sex: Female

DRUGS (6)
  1. PAROXETINE (PAROXETINE) [Suspect]
     Indication: ANXIETY
     Route: 048
     Dates: start: 200601
  2. CO-AMOXICLAV(SPEKTRAMOX) [Concomitant]
  3. CO-DYDRAMOL(PARAMOL-118) [Concomitant]
  4. PREDNISOLONE (PREDNISOLONE) [Concomitant]
  5. PROTIUM [Concomitant]
  6. QVAR (BECLOMETASONE DIPROPIONATE) [Concomitant]

REACTIONS (4)
  - Drug withdrawal syndrome [None]
  - Panic attack [None]
  - Arteriospasm coronary [None]
  - Arrhythmia [None]
